FAERS Safety Report 6834327-0 (Version None)
Quarter: 2010Q3

REPORT INFORMATION
  Report Type: 
  Country: None (occurrence: None)
  Receive Date: 20100712
  Receipt Date: 20070424
  Transmission Date: 20110219
  Serious: No
  Sender: FDA-Public Use
  Company Number: US-PFIZER INC-2007034680

PATIENT
  Sex: Female
  Weight: 75 kg

DRUGS (3)
  1. CHANTIX [Suspect]
     Indication: SMOKING CESSATION THERAPY
     Dates: start: 20070113, end: 20070409
  2. SYNTHROID [Concomitant]
  3. NORVASC [Concomitant]

REACTIONS (4)
  - CONSTIPATION [None]
  - GINGIVAL BLEEDING [None]
  - GINGIVAL SWELLING [None]
  - INSOMNIA [None]
